FAERS Safety Report 8423769-8 (Version None)
Quarter: 2012Q2

REPORT INFORMATION
  Report Type: 
  Country: None (occurrence: None)
  Receive Date: 20120608
  Receipt Date: 20120127
  Transmission Date: 20120825
  Serious: Yes (Other)
  Sender: FDA-Public Use
  Company Number: US-ASTRAZENECA-2012SE05769

PATIENT
  Age: 63 Year
  Sex: Female
  Weight: 136.1 kg

DRUGS (1)
  1. ATACAND [Suspect]
     Indication: BLOOD PRESSURE ABNORMAL
     Route: 048
     Dates: start: 20090101

REACTIONS (7)
  - FEELING ABNORMAL [None]
  - PAROSMIA [None]
  - BLOOD CREATINE ABNORMAL [None]
  - ASTHENIA [None]
  - RENAL FAILURE [None]
  - MALAISE [None]
  - DEPRESSED MOOD [None]
